FAERS Safety Report 13028962 (Version 1)
Quarter: 2016Q4

REPORT INFORMATION
  Report Type: Report from Study
  Country: JP (occurrence: JP)
  Receive Date: 20161214
  Receipt Date: 20161214
  Transmission Date: 20170207
  Serious: Yes (Hospitalization)
  Sender: FDA-Public Use
  Company Number: JP-CONCORDIA PHARMACEUTICALS INC.-E2B_00007887

PATIENT
  Age: 85 Year
  Sex: Female

DRUGS (9)
  1. RIVASTACH [Concomitant]
     Active Substance: RIVASTIGMINE
  2. MAGMITT [Concomitant]
     Active Substance: MAGNESIUM OXIDE
  3. ZONISAMIDE. [Suspect]
     Active Substance: ZONISAMIDE
     Indication: DEMENTIA WITH LEWY BODIES
     Dosage: 25 MG, 50 MG, OR PLACEBO
     Route: 048
     Dates: start: 20160319, end: 20160607
  4. SYMMETREL [Concomitant]
     Active Substance: AMANTADINE HYDROCHLORIDE
  5. TOYOFAROL [Concomitant]
     Active Substance: ALFACALCIDOL
  6. NEODOPASTON [Concomitant]
     Active Substance: CARBIDOPA\LEVODOPA
  7. ZONISAMIDE. [Suspect]
     Active Substance: ZONISAMIDE
     Route: 048
     Dates: start: 20160831, end: 20161013
  8. OLMETEC OD [Concomitant]
  9. ZONISAMIDE. [Suspect]
     Active Substance: ZONISAMIDE
     Indication: PARKINSONISM
     Route: 048
     Dates: start: 20160608, end: 20160830

REACTIONS (1)
  - Pneumonia aspiration [Not Recovered/Not Resolved]

NARRATIVE: CASE EVENT DATE: 20161014
